FAERS Safety Report 17152129 (Version 3)
Quarter: 2021Q1

REPORT INFORMATION
  Report Type: Spontaneous
  Country: CA (occurrence: CA)
  Receive Date: 20191213
  Receipt Date: 20210329
  Transmission Date: 20210419
  Serious: Yes (Other)
  Sender: FDA-Public Use
  Company Number: CA-COVIS PHARMA B.V.-2019COV00318

PATIENT
  Age: 73 Year
  Sex: Female

DRUGS (9)
  1. CYANOCOBALAMIN. [Concomitant]
     Active Substance: CYANOCOBALAMIN
  2. AMLODIPINE [Suspect]
     Active Substance: AMLODIPINE BESYLATE
  3. LOPERAMIDE [Suspect]
     Active Substance: LOPERAMIDE
  4. SALBUTAMOL SULFATE [Suspect]
     Active Substance: ALBUTEROL SULFATE
  5. OMNARIS [Suspect]
     Active Substance: CICLESONIDE
     Route: 055
  6. SEEBRI BREEZHALER [Suspect]
     Active Substance: GLYCOPYRROLATE
  7. GABAPENTIN. [Suspect]
     Active Substance: GABAPENTIN
  8. PREDNISONE. [Suspect]
     Active Substance: PREDNISONE
  9. MICARDIS [Suspect]
     Active Substance: TELMISARTAN

REACTIONS (6)
  - Dyspnoea [Unknown]
  - Arthritis [Unknown]
  - Glaucoma [Unknown]
  - Asthma [Unknown]
  - Depression [Unknown]
  - Sleep apnoea syndrome [Unknown]
